FAERS Safety Report 6928463-8 (Version None)
Quarter: 2010Q3

REPORT INFORMATION
  Report Type: 
  Country: None (occurrence: None)
  Receive Date: 20100817
  Receipt Date: 20100811
  Transmission Date: 20110219
  Serious: No
  Sender: FDA-Public Use
  Company Number: CN-SANOFI-AVENTIS-2010SA019507

PATIENT
  Age: 80 Year
  Sex: Male
  Weight: 55 kg

DRUGS (2)
  1. ENOXAPARIN SODIUM [Suspect]
     Route: 058
     Dates: start: 20091127, end: 20091202
  2. ISOSORBIDE MONONITRATE [Concomitant]

REACTIONS (1)
  - HAEMOGLOBIN DECREASED [None]
